FAERS Safety Report 12901840 (Version 1)
Quarter: 2016Q4

REPORT INFORMATION
  Report Type: Report from Study
  Country: US (occurrence: US)
  Receive Date: 20161102
  Receipt Date: 20161102
  Transmission Date: 20170207
  Serious: Yes (Death, Other)
  Sender: FDA-Public Use
  Company Number: US-ROCHE-521784

PATIENT

DRUGS (3)
  1. CARBOPLATIN. [Suspect]
     Active Substance: CARBOPLATIN
     Indication: NON-SMALL CELL LUNG CANCER
     Dosage: UP TO 6 CYCLES OF CHEMOTHERAPY WITH CARBOPLATIN AND PACLITAXEL EVERY 3 WEEKS UNIT DOSE=6 MG/ML
     Route: 065
  2. PACLITAXEL. [Suspect]
     Active Substance: PACLITAXEL
     Indication: NON-SMALL CELL LUNG CANCER
     Dosage: 200MG/M FOR UP TO 6 CYCLES OF CHEMOTHERAPY WITH PACLITAXEL EVERY 3 WEEKS
     Route: 065
  3. BEVACIZUMAB [Suspect]
     Active Substance: BEVACIZUMAB
     Indication: NON-SMALL CELL LUNG CANCER
     Dosage: DAY 1
     Route: 065

REACTIONS (20)
  - Pulmonary embolism [Fatal]
  - Infection [Fatal]
  - Hyponatraemia [Unknown]
  - Proteinuria [Unknown]
  - Cerebrovascular disorder [Fatal]
  - Decreased appetite [Unknown]
  - Thrombocytopenia [Unknown]
  - Nausea [Unknown]
  - Neuropathy peripheral [Unknown]
  - Embolism [Unknown]
  - Haemoptysis [Fatal]
  - Thrombosis [Unknown]
  - Pulmonary haemorrhage [Fatal]
  - Haematemesis [Fatal]
  - Hypertension [Unknown]
  - Fatigue [Unknown]
  - Febrile neutropenia [Fatal]
  - Neutropenia [Unknown]
  - Epistaxis [Unknown]
  - Gastrointestinal haemorrhage [Fatal]
